FAERS Safety Report 17622765 (Version 1)
Quarter: 2020Q2

REPORT INFORMATION
  Report Type: Spontaneous
  Country: US (occurrence: US)
  Receive Date: 20200403
  Receipt Date: 20200403
  Transmission Date: 20200713
  Serious: No
  Sender: FDA-Public Use
  Company Number: None

PATIENT
  Age: 71 Year
  Sex: Male
  Weight: 70.2 kg

DRUGS (18)
  1. XPOVIO 20MG, ORAL [Concomitant]
     Dates: start: 20200102, end: 20200109
  2. OLANZAPINE 5 MG, ORAL [Concomitant]
  3. TAMSULOSIN, 0.4 MG, ORAL [Concomitant]
  4. OMEPRAZOLE 20 MG, ORAL [Concomitant]
  5. XPOVIO [Suspect]
     Active Substance: SELINEXOR
     Indication: PLASMA CELL MYELOMA
     Dosage: ?          OTHER FREQUENCY:EVERY WEEK;?
     Route: 048
     Dates: start: 20200109, end: 20200403
  6. CALCIUM 600, ORAL [Concomitant]
  7. ONDANSETRON 4 MG, ORAL [Concomitant]
  8. DEXAMETHASONE 2 MG, ORAL [Concomitant]
  9. KYPROLIS 10MG, ORAL [Concomitant]
  10. ATORVASTATIN CALCIUM, ORAL [Concomitant]
  11. VALACYCLOVIR, 500MG, ORAL [Concomitant]
  12. REVLIMID 15MG ORAL [Concomitant]
     Dates: start: 20180720, end: 20180720
  13. PANTOPRAZOLE SODIUM 40MG, ORAL [Concomitant]
  14. GABAPENTIN 300MG, ORAL [Concomitant]
     Active Substance: GABAPENTIN
  15. ASPIRIN 81 MG, ORAL [Concomitant]
  16. POMALYST 4MG, ORAL [Concomitant]
     Dates: start: 20181022, end: 20181114
  17. REVLIMID 25MG, ORAL [Concomitant]
     Dates: start: 20180502, end: 20180614
  18. POMALYST 3MG, ORAL [Concomitant]
     Dates: start: 20190711, end: 20191030

REACTIONS (3)
  - Asthenia [None]
  - Anaemia [None]
  - Cough [None]

NARRATIVE: CASE EVENT DATE: 20200403
